FAERS Safety Report 6955731-6 (Version None)
Quarter: 2010Q3

REPORT INFORMATION
  Report Type: 
  Country: None (occurrence: None)
  Receive Date: 20100830
  Receipt Date: 20100825
  Transmission Date: 20110219
  Serious: Yes (Hospitalization)
  Sender: FDA-Public Use
  Company Number: BR-ROCHE-718449

PATIENT
  Age: 29 Year
  Sex: Female

DRUGS (4)
  1. AVASTIN [Suspect]
     Indication: COLON CANCER STAGE IV
     Route: 065
  2. FOLIC ACID [Suspect]
     Indication: COLON CANCER STAGE IV
     Route: 065
  3. FLUOROURACIL [Suspect]
     Indication: COLON CANCER STAGE IV
     Route: 065
  4. IRINOTECAN HCL [Suspect]
     Indication: COLON CANCER STAGE IV
     Route: 065

REACTIONS (4)
  - HAEMATURIA [None]
  - NEUTROPENIA [None]
  - PROTEINURIA [None]
  - RENAL IMPAIRMENT [None]
